FAERS Safety Report 21085332 (Version 5)
Quarter: 2022Q4

REPORT INFORMATION
  Report Type: Spontaneous
  Country: CA (occurrence: CA)
  Receive Date: 20220714
  Receipt Date: 20221026
  Transmission Date: 20230113
  Serious: Yes (Hospitalization, Other)
  Sender: FDA-Public Use
  Company Number: CA-CELLTRION INC.-2020CA027733

PATIENT

DRUGS (28)
  1. INFLECTRA [Suspect]
     Active Substance: INFLIXIMAB-DYYB
     Indication: Crohn^s disease
     Dosage: 10 MG/KG, 0, 2, 6 THEN EVERY 8 WEEKS(Q 0 WEEK DOSE)
     Route: 042
     Dates: start: 20200903, end: 20200903
  2. INFLECTRA [Suspect]
     Active Substance: INFLIXIMAB-DYYB
     Dosage: 10 MG/KG, 0, 2, 6 THEN EVERY 8 WEEKS(Q 2 WEEK DOSE)
     Route: 042
     Dates: start: 20200919, end: 20200919
  3. INFLECTRA [Suspect]
     Active Substance: INFLIXIMAB-DYYB
     Dosage: 10 MG/KG, 0, 2, 6 THEN EVERY 8 WEEKS(Q 6 WEEK DOSE)
     Route: 042
     Dates: start: 20201016, end: 20201016
  4. INFLECTRA [Suspect]
     Active Substance: INFLIXIMAB-DYYB
     Dosage: 10 MG/KG, 0, 2, 6 THEN EVERY 8 WEEKS
     Route: 042
     Dates: start: 20201016, end: 20201019
  5. INFLECTRA [Suspect]
     Active Substance: INFLIXIMAB-DYYB
     Dosage: 10 MG/KG, EVERY 8 WEEKS (10 MG/KG ROUND TO NEAREST 100 MG)
     Route: 042
     Dates: start: 20201209
  6. INFLECTRA [Suspect]
     Active Substance: INFLIXIMAB-DYYB
     Dosage: 10 MG/KG, EVERY 8 WEEKS (10 MG/KG ROUND TO NEAREST 100 MG)
     Route: 042
     Dates: start: 20210203
  7. INFLECTRA [Suspect]
     Active Substance: INFLIXIMAB-DYYB
     Dosage: 10 MG/KG, EVERY 8 WEEKS (10 MG/KG ROUND TO NEAREST 100 MG)
     Route: 042
     Dates: start: 20210330
  8. INFLECTRA [Suspect]
     Active Substance: INFLIXIMAB-DYYB
     Dosage: 10 MG/KG, EVERY 8 WEEKS (10 MG/KG ROUND TO NEAREST 100 MG)
     Route: 042
     Dates: start: 20210525
  9. INFLECTRA [Suspect]
     Active Substance: INFLIXIMAB-DYYB
     Dosage: 10 MG/KG, EVERY 8 WEEKS (10 MG/KG ROUND TO NEAREST 100 MG)
     Route: 042
     Dates: start: 20210920
  10. INFLECTRA [Suspect]
     Active Substance: INFLIXIMAB-DYYB
     Dosage: UNK
     Route: 042
     Dates: start: 20211111
  11. INFLECTRA [Suspect]
     Active Substance: INFLIXIMAB-DYYB
     Dosage: 10 MG/KG (ROUND TO NEAREST 100 MG) , EVERY 8 WEEKS
     Route: 042
     Dates: start: 20220106
  12. INFLECTRA [Suspect]
     Active Substance: INFLIXIMAB-DYYB
     Dosage: 10 MG/KG, (ROUND TO NEAREST 100 MG) , EVERY 8 WEEKS
     Route: 042
     Dates: start: 20220302
  13. INFLECTRA [Suspect]
     Active Substance: INFLIXIMAB-DYYB
     Dosage: 10 MG/KG, EVERY 8 WEEKS (10 MG/KG ROUND TO NEAREST 100 MG)
     Route: 042
     Dates: start: 20220511
  14. INFLECTRA [Suspect]
     Active Substance: INFLIXIMAB-DYYB
     Dosage: 10 MG/KG, EVERY 8 WEEKS (10 MG/KG ROUND TO NEAREST 100 MG)
     Route: 042
     Dates: start: 20220705
  15. INFLECTRA [Suspect]
     Active Substance: INFLIXIMAB-DYYB
     Dosage: 10 MG/KG, EVERY 8 WEEKS (10 MG/KG ROUND TO NEAREST 100 MG)
     Route: 042
     Dates: start: 20220705
  16. INFLECTRA [Suspect]
     Active Substance: INFLIXIMAB-DYYB
     Dosage: 10 MG/KG, EVERY 8 WEEKS (10 MG/KG ROUND TO NEAREST 100 MG)
     Route: 042
     Dates: start: 20220919
  17. DICYCLOMINE HYDROCHLORIDE [Concomitant]
     Active Substance: DICYCLOMINE HYDROCHLORIDE
     Dosage: 1 DF
  18. CALCIUM [Concomitant]
     Active Substance: CALCIUM
     Dosage: 1 DF
  19. CIPROFLOXACIN [Concomitant]
     Active Substance: CIPROFLOXACIN
     Dosage: UNK
     Dates: start: 20201004
  20. CORTISONE [Concomitant]
     Active Substance: CORTISONE
     Dosage: UNK
     Dates: start: 20210720
  21. FLAGYL [Concomitant]
     Active Substance: METRONIDAZOLE\METRONIDAZOLE HYDROCHLORIDE
     Dosage: UNK
     Dates: start: 20201004
  22. IMURAN [Concomitant]
     Active Substance: AZATHIOPRINE
     Dosage: 25 MG, 1X/DAY
     Route: 048
     Dates: start: 202008
  23. PANTOPRAZOLE SODIUM [Concomitant]
     Active Substance: PANTOPRAZOLE SODIUM
     Dosage: 1 DF
  24. PREDNISONE [Concomitant]
     Active Substance: PREDNISONE
     Dosage: 1 DF UNKNOWN; TAPER
  25. PREDNISONE [Concomitant]
     Active Substance: PREDNISONE
     Dosage: 1 DF, DOSAGE INFORMATION FOR PREDNISONE UNKNOWN; TAPER
  26. PREDNISONE [Concomitant]
     Active Substance: PREDNISONE
     Dosage: 1 DF DOSAGE INFORMATION FOR PREDNISONE UNKNOWN; TAPER
     Route: 065
  27. PROZAC [Concomitant]
     Active Substance: FLUOXETINE HYDROCHLORIDE
     Dosage: 1 DF
  28. TOPIRAMATE [Concomitant]
     Active Substance: TOPIRAMATE
     Dosage: 1 DF

REACTIONS (22)
  - Intestinal obstruction [Unknown]
  - Maternal exposure during pregnancy [Unknown]
  - Off label use [Unknown]
  - Intentional product use issue [Unknown]
  - Inappropriate schedule of product administration [Unknown]
  - Fatigue [Not Recovered/Not Resolved]
  - Tachycardia [Unknown]
  - Feeling abnormal [Unknown]
  - Abscess [Unknown]
  - Skin laceration [Unknown]
  - Weight increased [Unknown]
  - Ulcer [Unknown]
  - Herpes zoster [Unknown]
  - Wound [Recovering/Resolving]
  - Erythema [Not Recovered/Not Resolved]
  - Pruritus [Unknown]
  - Migraine [Not Recovered/Not Resolved]
  - Cholelithiasis [Unknown]
  - Abdominal pain [Unknown]
  - Vomiting [Unknown]
  - COVID-19 [Recovered/Resolved]
  - Mastitis [Not Recovered/Not Resolved]

NARRATIVE: CASE EVENT DATE: 20200919
